FAERS Safety Report 9742247 (Version 2)
Quarter: 2013Q4

REPORT INFORMATION
  Report Type: Report from Study
  Country: US (occurrence: US)
  Receive Date: 20131210
  Receipt Date: 20131218
  Transmission Date: 20140711
  Serious: Yes (Other)
  Sender: FDA-Public Use
  Company Number: US-PFIZER INC-2013348224

PATIENT
  Sex: Male
  Weight: 1 kg

DRUGS (19)
  1. SIROLIMUS [Suspect]
     Indication: TRANSPLANT
     Dosage: EXPOSURE: P-1: 2 MG, QD
     Route: 048
     Dates: end: 20130111
  2. SIROLIMUS [Suspect]
     Dosage: EXPOSURE: 1: 3 MG, QD
     Route: 048
     Dates: start: 20130112, end: 20130222
  3. SIROLIMUS [Suspect]
     Dosage: EXPOSURE: 2: 2 MG, BID
     Route: 048
     Dates: start: 20130223, end: 20130323
  4. SIROLIMUS [Suspect]
     Dosage: EXPOSURE: 2-3: 3MG AM / 2MG PM
     Route: 048
     Dates: start: 20130324
  5. PREDNISONE [Concomitant]
     Indication: TRANSPLANT
     Dosage: EXPOSURE: P-3: 10 MG, QD
     Route: 048
  6. CYCLOPHOSPHAMIDE, USP MODIFIED [Concomitant]
     Indication: TRANSPLANT
     Dosage: EXPOSURE: P-1: 50 MG, BID
     Route: 048
     Dates: end: 20130204
  7. CYCLOPHOSPHAMIDE, USP MODIFIED [Concomitant]
     Dosage: EXPOSURE:1: 75 MG, BID
     Dates: start: 20130205, end: 20130222
  8. CYCLOPHOSPHAMIDE, USP MODIFIED [Concomitant]
     Dosage: EXPOSURE: 2: 100MG AM / 75MG PM BID
     Route: 048
     Dates: start: 20130223, end: 20130321
  9. CYCLOPHOSPHAMIDE, USP MODIFIED [Concomitant]
     Dosage: EXPOSURE: 2-3: 100 MG, BID
     Route: 048
     Dates: start: 20130322
  10. LABETALOL [Concomitant]
     Indication: HYPERTENSION
     Dosage: EXPOSURE: P-3: 50 MG BID
     Route: 048
  11. ENALAPRIL [Concomitant]
     Indication: HYPERTENSION
     Dosage: EXPOSURE: P-1: 20 MG, QD
     Route: 048
  12. NIFEDIPINE [Concomitant]
     Dosage: EXPOSURE: 1-3: 60 MG, BID
     Route: 048
  13. LIPITOR [Concomitant]
     Dosage: EXPOSURE: P
  14. IRON [Concomitant]
     Dosage: EXPOSURE: 1-3
  15. PRENATAL VITAMINS [Concomitant]
     Dosage: EXPOSURE: 1-3
  16. MAGNESIUM [Concomitant]
     Dosage: EXPOSURE: 1-3
  17. POTASSIUM [Concomitant]
     Dosage: EXPOSURE: 1-3
  18. PEPCID [Concomitant]
     Dosage: EXPOSURE: P
  19. INSULIN [Concomitant]
     Indication: GESTATIONAL DIABETES
     Dosage: EXPOSURE: 2-3

REACTIONS (2)
  - Maternal exposure during pregnancy [Unknown]
  - Premature baby [Recovered/Resolved]
